FAERS Safety Report 11791833 (Version 1)
Quarter: 2015Q4

REPORT INFORMATION
  Report Type: Report from Study
  Country: BR (occurrence: BR)
  Receive Date: 20151201
  Receipt Date: 20151201
  Transmission Date: 20160305
  Serious: Yes (Other)
  Sender: FDA-Public Use
  Company Number: PHHY2015BR156140

PATIENT
  Sex: Male
  Weight: 90 kg

DRUGS (1)
  1. SANDOSTATIN LAR DEPOT [Suspect]
     Active Substance: OCTREOTIDE ACETATE
     Indication: PITUITARY TUMOUR BENIGN
     Dosage: 30 MG, QMO (ONCE A MONTH)
     Route: 030

REACTIONS (9)
  - Speech disorder [Unknown]
  - Eating disorder [Unknown]
  - Mood altered [Unknown]
  - Seizure [Recovered/Resolved]
  - Disorientation [Unknown]
  - Memory impairment [Unknown]
  - Retching [Unknown]
  - Aggression [Unknown]
  - Agitation [Unknown]
